FAERS Safety Report 6344382-2 (Version None)
Quarter: 2009Q3

REPORT INFORMATION
  Report Type: 
  Country: None (occurrence: None)
  Receive Date: 20090908
  Receipt Date: 20090824
  Transmission Date: 20100115
  Serious: Yes (Death, Other)
  Sender: FDA-Public Use
  Company Number: DE-PFIZER INC-2009261484

PATIENT
  Age: 42 Year

DRUGS (3)
  1. DOXEPIN HCL [Suspect]
  2. DIAZEPAM [Suspect]
  3. METHADONE [Suspect]

REACTIONS (3)
  - CIRCULATORY COLLAPSE [None]
  - DEATH [None]
  - PNEUMONIA [None]
